FAERS Safety Report 5419525-5 (Version None)
Quarter: 2007Q3

REPORT INFORMATION
  Report Type: 
  Country: None (occurrence: None)
  Receive Date: 20070820
  Receipt Date: 20070814
  Transmission Date: 20080115
  Serious: Yes (Hospitalization)
  Sender: FDA-Public Use
  Company Number: DK-AVENTIS-200717138GDDC

PATIENT
  Age: 95 Year
  Sex: Female

DRUGS (13)
  1. LANTUS [Suspect]
     Dosage: DOSE QUANTITY: 16
     Route: 058
  2. OPTIPEN (INSULIN PUMP) [Suspect]
  3. FOSAMAX [Concomitant]
     Route: 048
  4. PANTOLOC                           /01263201/ [Concomitant]
     Route: 048
  5. MAGNYL [Concomitant]
     Route: 048
  6. PAMOL                              /00020001/ [Concomitant]
     Route: 048
  7. TRAMADOL HCL [Concomitant]
     Route: 048
  8. CETIRIZIN [Concomitant]
  9. UNIKALK [Concomitant]
     Dosage: DOSE QUANTITY: 1
     Route: 048
  10. VISCOTEARS [Concomitant]
     Dosage: DOSE QUANTITY: 1
     Route: 047
  11. OPHTHALMOLOGICALS [Concomitant]
     Dosage: DOSE QUANTITY: 1
     Route: 047
  12. LAKTULOSE [Concomitant]
     Route: 048
  13. LAXATIVES [Concomitant]
     Dosage: DOSE QUANTITY: 10

REACTIONS (3)
  - HYPERGLYCAEMIA [None]
  - KETOACIDOSIS [None]
  - PHARMACEUTICAL PRODUCT COMPLAINT [None]
